FAERS Safety Report 9962932 (Version 1)
Quarter: 2014Q1

REPORT INFORMATION
  Report Type: Spontaneous
  Country: DE (occurrence: DE)
  Receive Date: 20140305
  Receipt Date: 20140305
  Transmission Date: 20141002
  Serious: Yes (Life-Threatening, Hospitalization)
  Sender: FDA-Public Use
  Company Number: DE-TEVA-465133GER

PATIENT
  Age: 54 Year
  Sex: Female
  Weight: 90 kg

DRUGS (3)
  1. DOXYCYCLIN [Suspect]
     Indication: ATYPICAL PNEUMONIA
     Dosage: 200 MILLIGRAM DAILY;
  2. CEFUROXIM [Suspect]
     Indication: ATYPICAL PNEUMONIA
     Dosage: 2 DOSAGE FORMS DAILY;
  3. CAPRELSA [Suspect]
     Indication: THYROID CANCER
     Dosage: 300 MILLIGRAM DAILY;

REACTIONS (3)
  - Pancreatitis [Recovering/Resolving]
  - Pneumonia [Unknown]
  - Renal failure acute [Unknown]
